FAERS Safety Report 12552233 (Version 1)
Quarter: 2016Q3

REPORT INFORMATION
  Report Type: Spontaneous
  Country: DK (occurrence: DK)
  Receive Date: 20160713
  Receipt Date: 20160713
  Transmission Date: 20161109
  Serious: Yes (Hospitalization)
  Sender: FDA-Public Use
  Company Number: DK-TEVA-673991ACC

PATIENT
  Age: 48 Year
  Sex: Female

DRUGS (3)
  1. PANODIL [Concomitant]
     Active Substance: ACETAMINOPHEN
     Indication: BACK PAIN
     Dates: start: 2003
  2. IBUPROFEN. [Suspect]
     Active Substance: IBUPROFEN
     Indication: BACK PAIN
     Route: 048
     Dates: start: 2003, end: 200904
  3. TODOLAC [Suspect]
     Active Substance: ETODOLAC
     Indication: BACK PAIN
     Route: 048
     Dates: start: 200904, end: 201307

REACTIONS (7)
  - Palpitations [Unknown]
  - Peripheral swelling [Unknown]
  - Cardiomegaly [Unknown]
  - Activities of daily living impaired [Not Recovered/Not Resolved]
  - Dyspnoea [Recovered/Resolved]
  - Cardiac failure [Unknown]
  - Impaired work ability [Not Recovered/Not Resolved]

NARRATIVE: CASE EVENT DATE: 201312
